FAERS Safety Report 18384436 (Version 1)
Quarter: 2020Q4

REPORT INFORMATION
  Report Type: Spontaneous
  Country: DE (occurrence: US)
  Receive Date: 20201014
  Receipt Date: 20201014
  Transmission Date: 20210114
  Serious: No
  Sender: FDA-Public Use
  Company Number: DE-ALKERMES INC.-ALK-2020-004434

PATIENT
  Sex: Male
  Weight: 93.42 kg

DRUGS (4)
  1. PROPRANOLOL [Concomitant]
     Active Substance: PROPRANOLOL HYDROCHLORIDE
     Indication: ATTENTION DEFICIT HYPERACTIVITY DISORDER
     Dosage: UNK
     Route: 065
  2. ABILIFY MAINTENA [Suspect]
     Active Substance: ARIPIPRAZOLE
     Indication: PRODUCT USED FOR UNKNOWN INDICATION
     Dosage: 400 MILLIGRAM, QMO
     Route: 030
     Dates: start: 2020
  3. ARISTADA [Suspect]
     Active Substance: ARIPIPRAZOLE LAUROXIL
     Indication: PRODUCT USED FOR UNKNOWN INDICATION
     Dosage: UNK
     Route: 030
  4. ABILIFY [Suspect]
     Active Substance: ARIPIPRAZOLE
     Indication: PRODUCT USED FOR UNKNOWN INDICATION
     Dosage: UNK
     Route: 065

REACTIONS (8)
  - Gambling [Unknown]
  - Weight increased [Unknown]
  - Binge eating [Not Recovered/Not Resolved]
  - Communication disorder [Unknown]
  - Disturbance in attention [Unknown]
  - Tardive dyskinesia [Not Recovered/Not Resolved]
  - Sexual dysfunction [Unknown]
  - Hypersexuality [Unknown]
